FAERS Safety Report 7541977-5 (Version None)
Quarter: 2011Q2

REPORT INFORMATION
  Report Type: 
  Country: None (occurrence: None)
  Receive Date: 20110524
  Receipt Date: 20110325
  Transmission Date: 20111010
  Serious: No
  Sender: FDA-Public Use
  Company Number: 030072

PATIENT
  Sex: Female

DRUGS (14)
  1. COLAZAL [Concomitant]
  2. SYNTHROID [Concomitant]
  3. LANTUS [Concomitant]
  4. NOVOLOG [Concomitant]
  5. NEXIUM [Concomitant]
  6. LISINOPRIL [Concomitant]
  7. PRAVASTATIN [Concomitant]
  8. CIMZIA [Suspect]
     Indication: CROHN'S DISEASE
     Dosage: (SUBCUTANEOUS), (INDUCTION DOSE SUBCUTANEOUS), (400 MG 1X/MONTH, FORM: LYOPHILLISED SUBCUTANEOUS)
     Route: 058
     Dates: start: 20090127
  9. CIMZIA [Suspect]
     Indication: CROHN'S DISEASE
     Dosage: (SUBCUTANEOUS), (INDUCTION DOSE SUBCUTANEOUS), (400 MG 1X/MONTH, FORM: LYOPHILLISED SUBCUTANEOUS)
     Route: 058
     Dates: start: 20101102
  10. CIMZIA [Suspect]
     Indication: CROHN'S DISEASE
     Dosage: (SUBCUTANEOUS), (INDUCTION DOSE SUBCUTANEOUS), (400 MG 1X/MONTH, FORM: LYOPHILLISED SUBCUTANEOUS)
     Route: 058
     Dates: start: 20110128
  11. CALCIUM CARBONATE [Concomitant]
  12. M.V.I. [Concomitant]
  13. CIMZIA [Suspect]
  14. METFORMIN HCL [Concomitant]

REACTIONS (4)
  - CHILLS [None]
  - MYALGIA [None]
  - INJECTION SITE REACTION [None]
  - PYREXIA [None]
